FAERS Safety Report 4774779-3 (Version None)
Quarter: 2005Q3

REPORT INFORMATION
  Report Type: 
  Country: None (occurrence: None)
  Receive Date: 20050921
  Receipt Date: 20050624
  Transmission Date: 20060218
  Serious: Yes (Life-Threatening)
  Sender: FDA-Public Use
  Company Number: FR-GILEAD-2005-0008447

PATIENT
  Age: 57 Year
  Sex: Female

DRUGS (6)
  1. EMTRIVA [Suspect]
     Indication: ACQUIRED IMMUNODEFICIENCY SYNDROME
     Route: 048
     Dates: start: 20040406, end: 20050217
  2. KALETRA [Concomitant]
     Indication: ACQUIRED IMMUNODEFICIENCY SYNDROME
     Dates: start: 20040315
  3. WELLVONE [Concomitant]
     Indication: PNEUMOCYSTIS JIROVECI PNEUMONIA
     Dates: start: 20040406, end: 20050513
  4. IMOVANE [Concomitant]
     Route: 048
     Dates: start: 20040408
  5. ZYPREXA [Concomitant]
     Route: 048
     Dates: start: 20040830
  6. DEPAKOTE [Concomitant]
     Route: 048
     Dates: start: 20040430

REACTIONS (1)
  - PULMONARY EMBOLISM [None]
